FAERS Safety Report 7190588-2 (Version None)
Quarter: 2010Q4

REPORT INFORMATION
  Report Type: 
  Country: None (occurrence: None)
  Receive Date: 20101223
  Receipt Date: 20101212
  Transmission Date: 20110411
  Serious: Yes (Other)
  Sender: FDA-Public Use
  Company Number: DE-MYLANLABS-2010S1022714

PATIENT
  Age: 43 Year
  Sex: Male

DRUGS (2)
  1. PAROXEDURA [Suspect]
     Indication: SUICIDE ATTEMPT
     Route: 048
  2. LORAZEPAM DURA [Suspect]
     Indication: SUICIDE ATTEMPT
     Route: 048

REACTIONS (4)
  - INTENTIONAL OVERDOSE [None]
  - SOMNOLENCE [None]
  - SUICIDE ATTEMPT [None]
  - VOMITING [None]
